FAERS Safety Report 7535258-3 (Version None)
Quarter: 2011Q2

REPORT INFORMATION
  Report Type: 
  Country: None (occurrence: None)
  Receive Date: 20110609
  Receipt Date: 20091111
  Transmission Date: 20111010
  Serious: No
  Sender: FDA-Public Use
  Company Number: 2009BI036849

PATIENT
  Age: 32 Year
  Sex: Female

DRUGS (2)
  1. TYSABRI [Suspect]
     Indication: MULTIPLE SCLEROSIS
     Route: 042
     Dates: start: 20071030, end: 20081119
  2. TYSABRI [Suspect]
     Route: 042
     Dates: start: 20090723

REACTIONS (3)
  - MUSCLE SPASTICITY [None]
  - MIDDLE INSOMNIA [None]
  - FATIGUE [None]
